FAERS Safety Report 6522458-4 (Version None)
Quarter: 2009Q4

REPORT INFORMATION
  Report Type: 
  Country: None (occurrence: None)
  Receive Date: 20091230
  Receipt Date: 20091218
  Transmission Date: 20100525
  Serious: Yes (Hospitalization)
  Sender: FDA-Public Use
  Company Number: IT-ELI_LILLY_AND_COMPANY-IT200912004526

PATIENT
  Sex: Male

DRUGS (8)
  1. GEMZAR [Suspect]
     Indication: LUNG NEOPLASM MALIGNANT
     Dosage: 8000 MG, OTHER (PER CYCLE)
     Route: 042
     Dates: start: 20090912, end: 20091109
  2. CARBOPLATIN [Concomitant]
     Indication: LUNG NEOPLASM MALIGNANT
     Dosage: 820 MG, OTHER (PER CYCLE)
     Route: 042
     Dates: start: 20090912, end: 20091102
  3. DECADRON /CAN/ [Concomitant]
  4. ZYLORIC [Concomitant]
  5. NORVASC [Concomitant]
  6. QUINAPRIL [Concomitant]
  7. METFORMIN HCL [Concomitant]
  8. NOVONORM [Concomitant]

REACTIONS (5)
  - ATAXIA [None]
  - DYSSTASIA [None]
  - HYPOKINESIA [None]
  - MUSCULAR WEAKNESS [None]
  - PARAESTHESIA [None]
